FAERS Safety Report 24298691 (Version 2)
Quarter: 2024Q4

REPORT INFORMATION
  Report Type: Report from Study
  Country: CA (occurrence: CA)
  Receive Date: 20240909
  Receipt Date: 20241001
  Transmission Date: 20250114
  Serious: Yes (Hospitalization, Other)
  Sender: TAKEDA
  Company Number: CA-TAKEDA-2024TUS088750

PATIENT
  Sex: Female

DRUGS (4)
  1. VEDOLIZUMAB [Suspect]
     Active Substance: VEDOLIZUMAB
     Indication: Colitis ulcerative
     Dosage: 300 MILLIGRAM
     Route: 042
     Dates: start: 20240815
  2. PANTOPRAZOLE [Concomitant]
     Active Substance: PANTOPRAZOLE
     Dosage: 40 MILLIGRAM, QD
     Dates: start: 20240521
  3. MESALAMINE [Concomitant]
     Active Substance: MESALAMINE
     Dosage: UNK UNK, BID
     Dates: start: 20240521
  4. PREDNISONE [Concomitant]
     Active Substance: PREDNISONE
     Dosage: UNK
     Dates: start: 20240610

REACTIONS (3)
  - Clostridium difficile colitis [Recovering/Resolving]
  - Back pain [Unknown]
  - Sleep disorder [Unknown]
